FAERS Safety Report 7920223-4 (Version None)
Quarter: 2011Q4

REPORT INFORMATION
  Report Type: 
  Country: None (occurrence: None)
  Receive Date: 20111117
  Receipt Date: 20111116
  Transmission Date: 20120403
  Serious: Yes (Other)
  Sender: FDA-Public Use
  Company Number: JP-PFIZER INC-2011271225

PATIENT
  Age: 50 Year
  Sex: Male

DRUGS (3)
  1. PROSTAGLANDIN [Concomitant]
     Dosage: UNK
  2. SANPILO [Concomitant]
     Dosage: UNK
     Route: 047
  3. VARENICLINE TARTRATE [Suspect]
     Indication: SMOKING CESSATION THERAPY
     Dosage: UNK
     Route: 048

REACTIONS (1)
  - VISUAL IMPAIRMENT [None]
